FAERS Safety Report 5578490-0 (Version None)
Quarter: 2007Q4

REPORT INFORMATION
  Report Type: 
  Country: None (occurrence: None)
  Receive Date: 20071231
  Receipt Date: 20071226
  Transmission Date: 20080405
  Serious: Yes (Hospitalization, Other)
  Sender: FDA-Public Use
  Company Number: US-MERCK-0706USA00796

PATIENT
  Age: 64 Year
  Sex: Female

DRUGS (1)
  1. FOSAMAX [Suspect]
     Indication: OSTEOPOROSIS
     Route: 048
     Dates: start: 20030313, end: 20040719

REACTIONS (6)
  - ANXIETY [None]
  - CHEST PAIN [None]
  - DEPRESSION [None]
  - HYPERTENSION [None]
  - OSTEONECROSIS [None]
  - PALPITATIONS [None]
